FAERS Safety Report 9086067 (Version 2)
Quarter: 2013Q2

REPORT INFORMATION
  Report Type: Spontaneous
  Country: GB (occurrence: GB)
  Receive Date: 20130218
  Receipt Date: 20130528
  Transmission Date: 20140414
  Serious: Yes (Hospitalization)
  Sender: FDA-Public Use
  Company Number: GB-009507513-1302GBR004632

PATIENT
  Age: 73 Year
  Sex: Male

DRUGS (9)
  1. DEXAMETHASONE [Suspect]
     Indication: PLASMA CELL MYELOMA
     Dosage: 40 MG, QD
     Dates: start: 20120808
  2. REVLIMID [Suspect]
     Indication: PLASMA CELL MYELOMA
     Dosage: 25 MG, QD
     Route: 048
     Dates: start: 20120808
  3. ASPIRINE [Concomitant]
  4. FLUDROCORTISONE [Concomitant]
     Dosage: UNK
     Dates: start: 20111219
  5. GABAPENTIN [Concomitant]
     Dosage: UNK
     Dates: start: 20120125
  6. LANSOPRAZOLE [Concomitant]
     Dosage: UNK
     Dates: start: 20120125
  7. LAXIDO [Concomitant]
     Dosage: UNK
     Dates: start: 20120922
  8. PARACETAMOL TABLETS BP [Concomitant]
     Dosage: UNK
     Dates: start: 20120922
  9. SIMVASTATIN [Concomitant]

REACTIONS (1)
  - Influenza [Recovered/Resolved]
